FAERS Safety Report 22610128 (Version 1)
Quarter: 2023Q2

REPORT INFORMATION
  Report Type: Spontaneous
  Country: JP (occurrence: JP)
  Receive Date: 20230616
  Receipt Date: 20230616
  Transmission Date: 20230721
  Serious: Yes (Death)
  Sender: FDA-Public Use
  Company Number: JP-NShinyaku-EVA201701826ZZLILLY

PATIENT
  Age: 61 Year
  Sex: Male
  Weight: 67.5 kg

DRUGS (42)
  1. TADALAFIL [Suspect]
     Active Substance: TADALAFIL
     Indication: Pulmonary arterial hypertension
     Dosage: UNK UNK, UNKNOWN
     Route: 048
  2. UPTRAVI [Suspect]
     Active Substance: SELEXIPAG
     Indication: Pulmonary arterial hypertension
     Dosage: 2400 UG, DAILY
     Route: 048
     Dates: end: 20170126
  3. UPTRAVI [Suspect]
     Active Substance: SELEXIPAG
     Dosage: 1200 UG, DAILY
     Route: 048
     Dates: start: 20170126, end: 20170126
  4. UPTRAVI [Suspect]
     Active Substance: SELEXIPAG
     Dosage: 1.2 UG, BID
     Route: 048
     Dates: start: 20170126, end: 20170705
  5. UPTRAVI [Suspect]
     Active Substance: SELEXIPAG
     Dosage: 0.8 UG, TID
     Route: 048
     Dates: start: 20170706
  6. UPTRAVI [Suspect]
     Active Substance: SELEXIPAG
     Dosage: 0.4 MG, BID
     Route: 048
     Dates: start: 20181016
  7. UPTRAVI [Suspect]
     Active Substance: SELEXIPAG
     Dosage: 1.2 MG, DAILY
     Route: 048
     Dates: start: 20181021
  8. UPTRAVI [Suspect]
     Active Substance: SELEXIPAG
     Dosage: 0.8 MG, EVERY 6 HRS
     Route: 048
     Dates: start: 20181023
  9. UPTRAVI [Suspect]
     Active Substance: SELEXIPAG
     Dosage: 0.4 MG, EVERY 4 HRS
     Route: 048
     Dates: start: 20181126
  10. UPTRAVI [Suspect]
     Active Substance: SELEXIPAG
     Dosage: 0.4 MG, TID
     Route: 048
     Dates: start: 20181206
  11. UPTRAVI [Suspect]
     Active Substance: SELEXIPAG
     Dosage: 0.4 MG, EVERY 6 HRS
     Route: 048
     Dates: start: 20190103
  12. ADEMPAS [Suspect]
     Active Substance: RIOCIGUAT
     Indication: Pulmonary arterial hypertension
     Dosage: 7.5 MG, DAILY
     Route: 048
     Dates: start: 20170620
  13. OPSUMIT [Concomitant]
     Active Substance: MACITENTAN
     Indication: Pulmonary arterial hypertension
     Dosage: 10 MG, DAILY
     Route: 065
  14. MOSAPRIDE CITRATE [Concomitant]
     Active Substance: MOSAPRIDE CITRATE
     Indication: Gastritis
     Dosage: 15 MG, UNKNOWN
  15. MOSAPRIDE CITRATE [Concomitant]
     Active Substance: MOSAPRIDE CITRATE
     Indication: Prophylaxis
  16. GASCON [DIMETICONE] [Concomitant]
     Indication: Large intestine polyp
     Dosage: UNK
     Dates: start: 20161005, end: 20161005
  17. GASCON [DIMETICONE] [Concomitant]
     Dosage: UNK
     Dates: start: 20161006, end: 20161006
  18. SENNOSIDES [Concomitant]
     Active Substance: SENNOSIDES
     Indication: Large intestine polyp
     Dosage: UNK
     Dates: start: 20161005, end: 20161005
  19. POTASSIUM CHLORIDE\SODIUM BICARBONATE\SODIUM SULFATE [Concomitant]
     Active Substance: POTASSIUM CHLORIDE\SODIUM BICARBONATE\SODIUM SULFATE
     Indication: Large intestine polyp
     Dosage: UNK
     Dates: start: 20161006, end: 20161006
  20. ATARAX-P [HYDROXYZINE HYDROCHLORIDE] [Concomitant]
     Indication: Large intestine polyp
     Dosage: UNK
     Dates: start: 20161006, end: 20161006
  21. AZOSEMIDE [Concomitant]
     Active Substance: AZOSEMIDE
     Indication: Product used for unknown indication
     Dosage: 30 MG
  22. SPIRONOLACTONE [Concomitant]
     Active Substance: SPIRONOLACTONE
     Indication: Product used for unknown indication
     Dosage: 25 MG
  23. NESINA [Concomitant]
     Active Substance: ALOGLIPTIN BENZOATE
     Indication: Product used for unknown indication
     Dosage: 25 MG
  24. FEBUXOSTAT [Concomitant]
     Active Substance: FEBUXOSTAT
     Indication: Hyperuricaemia
     Dosage: 20 MG
  25. VONOPRAZAN FUMARATE [Concomitant]
     Active Substance: VONOPRAZAN FUMARATE
     Indication: Prophylaxis
     Dosage: UNK
  26. METFORMIN HYDROCHLORIDE [Concomitant]
     Active Substance: METFORMIN HYDROCHLORIDE
     Indication: Diabetes mellitus
     Dosage: 250 MG
  27. IRSOGLADINE MALEATE [Concomitant]
     Active Substance: IRSOGLADINE MALEATE
     Indication: Prophylaxis
     Dosage: 4 MG
  28. TRAPIDIL [Concomitant]
     Active Substance: TRAPIDIL
     Indication: Product used for unknown indication
     Dosage: 450 MG
  29. TRANEXAMIC ACID [Concomitant]
     Active Substance: TRANEXAMIC ACID
     Indication: Nasopharyngitis
     Dosage: UNK
     Dates: start: 20161110, end: 20161115
  30. TRANEXAMIC ACID [Concomitant]
     Active Substance: TRANEXAMIC ACID
     Indication: Pharyngitis
     Dosage: UNK
     Dates: start: 20161208, end: 20161213
  31. TRANEXAMIC ACID [Concomitant]
     Active Substance: TRANEXAMIC ACID
     Dosage: UNK
     Dates: start: 20170105, end: 20170112
  32. CARBAZOCHROME SULFONATE NA [Concomitant]
     Indication: Nasopharyngitis
     Dosage: UNK
     Dates: start: 20161110, end: 20161115
  33. CARBAZOCHROME SULFONATE NA [Concomitant]
     Indication: Pharyngitis
     Dosage: UNK
     Dates: start: 20161208, end: 20161213
  34. CARBAZOCHROME SULFONATE NA [Concomitant]
     Dosage: UNK
     Dates: start: 20170105, end: 20170112
  35. CALONAL [Concomitant]
     Active Substance: ACETAMINOPHEN
     Indication: Nasopharyngitis
     Dosage: UNK
     Dates: start: 20161110, end: 20161114
  36. CALONAL [Concomitant]
     Active Substance: ACETAMINOPHEN
     Indication: Pharyngitis
     Dosage: UNK
     Dates: start: 20161208, end: 20161212
  37. SP [DEQUALINIUM CHLORIDE] [Concomitant]
     Indication: Nasopharyngitis
     Dosage: UNK
     Dates: start: 20161110, end: 20161115
  38. SP [DEQUALINIUM CHLORIDE] [Concomitant]
     Indication: Pharyngitis
     Dosage: UNK
     Dates: start: 20161208, end: 20161213
  39. DEXCHLORPHENIRAMINE MALEATE [Concomitant]
     Active Substance: DEXCHLORPHENIRAMINE MALEATE
     Indication: Pharyngitis
     Dosage: UNK
     Dates: start: 20170105, end: 20170112
  40. SAMSCA [Concomitant]
     Active Substance: TOLVAPTAN
     Indication: Product used for unknown indication
  41. TREPROSTINIL [Concomitant]
     Active Substance: TREPROSTINIL
     Indication: Pulmonary arterial hypertension
  42. EPOPROSTENOL [Concomitant]
     Active Substance: EPOPROSTENOL
     Indication: Pulmonary arterial hypertension

REACTIONS (6)
  - Pulmonary arterial hypertension [Fatal]
  - Nasopharyngitis [Recovered/Resolved]
  - Pharyngitis [Recovered/Resolved]
  - Fall [Recovered/Resolved]
  - Blood pressure decreased [Recovered/Resolved]
  - Headache [Recovered/Resolved]

NARRATIVE: CASE EVENT DATE: 20161006
